FAERS Safety Report 8963718 (Version 7)
Quarter: 2013Q3

REPORT INFORMATION
  Report Type: Spontaneous
  Country: JP (occurrence: JP)
  Receive Date: 20121213
  Receipt Date: 20130823
  Transmission Date: 20140515
  Serious: Yes (Hospitalization)
  Sender: FDA-Public Use
  Company Number: JP-ABBOTT-12P-087-1019664-00

PATIENT
  Age: 67 Year
  Sex: Male
  Weight: 66 kg

DRUGS (3)
  1. HUMIRA [Suspect]
     Indication: PSORIASIS
     Route: 058
     Dates: start: 20110426, end: 20110426
  2. HUMIRA [Suspect]
     Dates: end: 20121127
  3. HUMIRA [Suspect]
     Dates: start: 20130717

REACTIONS (2)
  - Non-Hodgkin^s lymphoma [Recovering/Resolving]
  - Psoriasis [Unknown]
